FAERS Safety Report 11599051 (Version 3)
Quarter: 2015Q4

REPORT INFORMATION
  Report Type: Report from Study
  Country: DE (occurrence: DE)
  Receive Date: 20151006
  Receipt Date: 20151210
  Transmission Date: 20160304
  Serious: Yes (Death, Life-Threatening, Hospitalization)
  Sender: FDA-Public Use
  Company Number: DE-BAYER-2015-379424

PATIENT
  Age: 70 Year
  Sex: Male
  Weight: 80 kg

DRUGS (8)
  1. CALCIUM D3 [CALCIUM CARBONATE,COLECALCIFEROL] [Concomitant]
     Active Substance: CALCIUM CARBONATE\CHOLECALCIFEROL
     Dosage: 500 MG, TID
     Dates: start: 2010
  2. IBEROGAST [Concomitant]
     Active Substance: HERBALS
     Indication: MALAISE
     Dosage: UNK
     Dates: end: 2015
  3. RADIUM-223 [Suspect]
     Active Substance: RADIUM RA-223 DICHLORIDE
     Indication: METASTASES TO BONE
  4. BISOPROLOL [Concomitant]
     Active Substance: BISOPROLOL
     Dosage: DAILY DOSE 5 MG
     Dates: start: 2010, end: 2015
  5. NOVALGIN [Concomitant]
     Active Substance: METAMIZOLE SODIUM
     Indication: PAIN
     Dosage: UNK
     Dates: start: 2014
  6. DIOVAN [Concomitant]
     Active Substance: VALSARTAN
     Dosage: DAILY DOSE 80 MG
     Dates: start: 2010, end: 2015
  7. RADIUM-223 [Suspect]
     Active Substance: RADIUM RA-223 DICHLORIDE
     Indication: HORMONE-REFRACTORY PROSTATE CANCER
     Dosage: 4 MBQ, ONCE
     Route: 042
     Dates: start: 20150603, end: 20150603
  8. MCP [Concomitant]
     Active Substance: METOCLOPRAMIDE HYDROCHLORIDE
     Dosage: 10 MG, QD
     Dates: start: 201505, end: 2015

REACTIONS (2)
  - Bone marrow failure [Not Recovered/Not Resolved]
  - Anaemia of malignant disease [Not Recovered/Not Resolved]

NARRATIVE: CASE EVENT DATE: 20150617
